FAERS Safety Report 15255099 (Version 2)
Quarter: 2018Q3

REPORT INFORMATION
  Report Type: Spontaneous
  Country: FR (occurrence: FR)
  Receive Date: 20180808
  Receipt Date: 20180814
  Transmission Date: 20181010
  Serious: Yes (Hospitalization)
  Sender: FDA-Public Use
  Company Number: FR-AMGEN-FRASP2018108484

PATIENT
  Age: 40 Year
  Sex: Male
  Weight: 60 kg

DRUGS (1)
  1. ARANESP [Suspect]
     Active Substance: DARBEPOETIN ALFA
     Indication: ANAEMIA
     Dosage: 150 MCG, QWK
     Route: 058
     Dates: start: 20180409, end: 20180619

REACTIONS (2)
  - Anaemia [Not Recovered/Not Resolved]
  - Anti-erythropoietin antibody [Not Recovered/Not Resolved]

NARRATIVE: CASE EVENT DATE: 201804
